FAERS Safety Report 24795721 (Version 3)
Quarter: 2025Q3

REPORT INFORMATION
  Report Type: Report from Study
  Country: US (occurrence: US)
  Receive Date: 20250101
  Receipt Date: 20250810
  Transmission Date: 20251021
  Serious: Yes (Hospitalization, Other)
  Sender: ALEXION PHARMACEUTICALS
  Company Number: US-AstraZeneca-CH-00775027A

PATIENT
  Age: 70 Year
  Sex: Female

DRUGS (1)
  1. OSIMERTINIB [Suspect]
     Active Substance: OSIMERTINIB

REACTIONS (8)
  - Neuropathy peripheral [Unknown]
  - Disease progression [Unknown]
  - COVID-19 [Recovered/Resolved]
  - Ulna fracture [Not Recovered/Not Resolved]
  - Back pain [Unknown]
  - Dry skin [Unknown]
  - Fall [Unknown]
  - Product dose omission issue [Unknown]

NARRATIVE: CASE EVENT DATE: 20241001
